FAERS Safety Report 7044186-1 (Version None)
Quarter: 2010Q4

REPORT INFORMATION
  Report Type: 
  Country: None (occurrence: None)
  Receive Date: 20101013
  Receipt Date: 20101005
  Transmission Date: 20110411
  Serious: No
  Sender: FDA-Public Use
  Company Number: US-PFIZER INC-2010126851

PATIENT
  Sex: Male
  Weight: 95.238 kg

DRUGS (14)
  1. LIPITOR [Suspect]
     Indication: BLOOD CHOLESTEROL INCREASED
     Dosage: 20 MG, 1X/DAY
     Route: 048
     Dates: start: 20091003
  2. ZOCOR [Suspect]
     Dosage: UNK
  3. LISINOPRIL [Concomitant]
     Dosage: 40 MG, UNK
  4. HYDROCHLOROTHIAZIDE [Concomitant]
     Dosage: 25 MG, 1X/DAY
  5. METOPROLOL [Concomitant]
     Dosage: 50 MG, 2X/DAY
  6. METFORMIN [Concomitant]
     Indication: DIABETES MELLITUS
     Dosage: 500 MG, 2X/DAY
  7. KLOR-CON [Concomitant]
     Dosage: 8 MEQ, 1X/DAY
  8. GLYBURIDE [Concomitant]
     Indication: DIABETES MELLITUS
     Dosage: 10 MG, 2X/DAY
  9. ACETYLSALICYLIC ACID [Concomitant]
     Dosage: 81 MG, 1X/DAY
  10. ISOSORBIDE [Concomitant]
     Dosage: 30 MG, 1X/DAY
  11. TERAZOSIN [Concomitant]
     Dosage: 10 MG, 1X/DAY
  12. LANTUS [Concomitant]
     Indication: DIABETES MELLITUS
     Dosage: UNK, 12 UNITS AT NIGHT
  13. FOLIC ACID [Concomitant]
     Dosage: 1 MG, 1X/DAY
  14. ACTOS [Concomitant]
     Indication: DIABETES MELLITUS
     Dosage: 30 MG, 1X/DAY

REACTIONS (2)
  - BODY HEIGHT DECREASED [None]
  - MYALGIA [None]
